FAERS Safety Report 18238440 (Version 1)
Quarter: 2020Q3

REPORT INFORMATION
  Report Type: Spontaneous
  Country: DZ (occurrence: DZ)
  Receive Date: 20200907
  Receipt Date: 20200907
  Transmission Date: 20201103
  Serious: Yes (Other)
  Sender: FDA-Public Use
  Company Number: DZ-SHIRE-DZ202028123

PATIENT

DRUGS (1)
  1. FEIBA NF [Suspect]
     Active Substance: ANTI-INHIBITOR COAGULANT COMPLEX
     Indication: FACTOR VIII DEFICIENCY
     Dosage: 90 INTERNATIONAL UNIT/KILOGRAM, 3X A WEEK
     Route: 065
     Dates: start: 201706, end: 20200826

REACTIONS (4)
  - Infusion related reaction [Unknown]
  - Loss of consciousness [Unknown]
  - Seizure [Unknown]
  - Pyrexia [Unknown]

NARRATIVE: CASE EVENT DATE: 20200708
